FAERS Safety Report 5248326-6 (Version None)
Quarter: 2007Q1

REPORT INFORMATION
  Report Type: 
  Country: None (occurrence: None)
  Receive Date: 20070227
  Receipt Date: 20070222
  Transmission Date: 20070707
  Serious: Yes (Other)
  Sender: FDA-Public Use
  Company Number: DE-SHR-DE-2007-004595

PATIENT
  Age: 56 Year
  Sex: Female
  Weight: 60 kg

DRUGS (1)
  1. MAGNEVIST [Suspect]
     Dosage: .6 ML/KG, 1 DOSE
     Route: 042
     Dates: start: 20061001, end: 20061001

REACTIONS (1)
  - VISUAL ACUITY REDUCED [None]
